FAERS Safety Report 5906387-2 (Version None)
Quarter: 2008Q4

REPORT INFORMATION
  Report Type: 
  Country: None (occurrence: None)
  Receive Date: 20081002
  Receipt Date: 20080922
  Transmission Date: 20090506
  Serious: Yes (Hospitalization)
  Sender: FDA-Public Use
  Company Number: JP-ABBOTT-07P-087-0372391-00

PATIENT
  Age: 75 Year
  Sex: Male

DRUGS (10)
  1. LEUPROLIDE ACETATE [Suspect]
     Indication: PROSTATE CANCER
     Route: 058
     Dates: start: 20060417, end: 20060417
  2. LEUPROLIDE ACETATE [Suspect]
     Dosage: (3 MONTHS)
     Route: 058
     Dates: start: 20061013, end: 20061013
  3. LEUPROLIDE ACETATE [Suspect]
     Route: 058
     Dates: start: 20070424, end: 20070424
  4. LEUPROLIDE ACETATE [Suspect]
     Route: 058
     Dates: start: 20050615, end: 20060307
  5. BICALUTAMIDE [Concomitant]
     Indication: PROSTATE CANCER
     Route: 048
     Dates: end: 20061106
  6. NIFEDIPINE [Concomitant]
     Indication: HYPERTENSION
     Route: 048
  7. TELMISARTAN [Concomitant]
     Indication: HYPERTENSION
     Route: 048
  8. ACARBOSE [Concomitant]
     Indication: DIABETES MELLITUS
     Route: 048
  9. CANDESARTAN CILEXETIL [Concomitant]
     Indication: HYPERTENSION
     Route: 048
  10. DILTIAZEM HYDROCHLORIDE [Concomitant]
     Indication: HYPERTENSION
     Route: 048

REACTIONS (2)
  - GASTRIC CANCER [None]
  - GENERAL PHYSICAL HEALTH DETERIORATION [None]
